FAERS Safety Report 7266039-6 (Version None)
Quarter: 2011Q1

REPORT INFORMATION
  Report Type: 
  Country: None (occurrence: None)
  Receive Date: 20110119
  Receipt Date: 20110111
  Transmission Date: 20110831
  Serious: Yes (Other)
  Sender: FDA-Public Use
  Company Number: 2010SP061232

PATIENT
  Age: 50 Year
  Sex: Female
  Weight: 73.0291 kg

DRUGS (1)
  1. SAPHRIS [Suspect]
     Indication: PRODUCT USED FOR UNKNOWN INDICATION
     Dosage: 5 MG;QD;SL
     Route: 060
     Dates: start: 20101114, end: 20101118

REACTIONS (10)
  - ELECTROCARDIOGRAM QT PROLONGED [None]
  - DECREASED APPETITE [None]
  - BLOOD PRESSURE DECREASED [None]
  - ANXIETY [None]
  - BLOOD PRESSURE ABNORMAL [None]
  - DEPRESSION [None]
  - PANIC ATTACK [None]
  - OBSESSIVE-COMPULSIVE DISORDER [None]
  - POOR QUALITY SLEEP [None]
  - CONDITION AGGRAVATED [None]
